FAERS Safety Report 11409660 (Version 2)
Quarter: 2015Q3

REPORT INFORMATION
  Report Type: Spontaneous
  Country: US (occurrence: US)
  Receive Date: 20150824
  Receipt Date: 20150918
  Transmission Date: 20151125
  Serious: Yes (Hospitalization, Other)
  Sender: FDA-Public Use
  Company Number: US-ROCHE-1602568

PATIENT
  Sex: Male
  Weight: 70.37 kg

DRUGS (1)
  1. ESBRIET [Suspect]
     Active Substance: PIRFENIDONE
     Indication: IDIOPATHIC PULMONARY FIBROSIS
     Dosage: 3 CAPSULES THRICE DAILY
     Route: 048
     Dates: start: 20150225

REACTIONS (6)
  - Haematochezia [Unknown]
  - Limb injury [Unknown]
  - Cellulitis [Unknown]
  - Feeling abnormal [Unknown]
  - Dyspepsia [Unknown]
  - Disorientation [Unknown]
